FAERS Safety Report 5314891-3 (Version None)
Quarter: 2007Q2

REPORT INFORMATION
  Report Type: 
  Country: None (occurrence: None)
  Receive Date: 20070502
  Receipt Date: 20070420
  Transmission Date: 20071010
  Serious: Yes (Hospitalization)
  Sender: FDA-Public Use
  Company Number: BR-ROCHE-494599

PATIENT
  Sex: Male

DRUGS (2)
  1. PEGASYS [Suspect]
     Indication: HEPATITIS C
     Route: 058
     Dates: start: 20070301, end: 20070301
  2. RIBAVIRIN [Concomitant]
     Indication: HEPATITIS C
     Dates: start: 20070301

REACTIONS (2)
  - APPLICATION SITE ERYTHEMA [None]
  - OEDEMA PERIPHERAL [None]
